FAERS Safety Report 15658462 (Version 1)
Quarter: 2018Q4

REPORT INFORMATION
  Report Type: Spontaneous
  Country: GB (occurrence: GB)
  Receive Date: 20181126
  Receipt Date: 20181126
  Transmission Date: 20190205
  Serious: Yes (Death, Hospitalization)
  Sender: FDA-Public Use
  Company Number: GB-SAKK-2018SA275461AA

PATIENT
  Age: 43 Year
  Sex: Male

DRUGS (1)
  1. LEFLUNOMIDE. [Suspect]
     Active Substance: LEFLUNOMIDE
     Dosage: UNK UNK, UNK
     Route: 065
     Dates: start: 20171117

REACTIONS (3)
  - Hepatic failure [Fatal]
  - Acute kidney injury [Fatal]
  - Toxicity to various agents [Fatal]
